FAERS Safety Report 9270896 (Version 8)
Quarter: 2013Q4

REPORT INFORMATION
  Report Type: Spontaneous
  Country: US (occurrence: US)
  Receive Date: 20130506
  Receipt Date: 20131127
  Transmission Date: 20140711
  Serious: Yes (Other)
  Sender: FDA-Public Use
  Company Number: US-009507513-1305USA000627

PATIENT
  Age: 67 Year
  Sex: Female

DRUGS (8)
  1. PEG-INTRON [Suspect]
     Indication: HEPATITIS C
     Dosage: REDIPEN
     Route: 058
     Dates: start: 20130430
  2. PEG-INTRON [Suspect]
     Dosage: REDIPEN
     Route: 058
     Dates: start: 20130527, end: 20131111
  3. REBETOL [Suspect]
     Indication: HEPATITIS C
     Dosage: UNK
     Route: 048
     Dates: start: 20130430
  4. REBETOL [Suspect]
     Dosage: 200 MG, BID
     Route: 048
     Dates: start: 20130527
  5. REBETOL [Suspect]
     Dosage: 400 MG, BID
     Dates: start: 2013, end: 2013
  6. REBETOL [Suspect]
     Dosage: 200 MG, BID
     Dates: start: 2013, end: 2013
  7. REBETOL [Suspect]
     Dosage: 400 MG, BID
     Dates: start: 2013, end: 20131118
  8. MELOXICAM [Concomitant]
     Indication: ARTHRITIS
     Dosage: 15 MG, QD

REACTIONS (72)
  - Cataract [Unknown]
  - Blood thyroid stimulating hormone abnormal [Unknown]
  - Alanine aminotransferase increased [Unknown]
  - Aspartate aminotransferase increased [Unknown]
  - Alanine aminotransferase increased [Unknown]
  - Aspartate aminotransferase increased [Unknown]
  - Alanine aminotransferase increased [Unknown]
  - Aspartate aminotransferase increased [Unknown]
  - Pain [Unknown]
  - Gastrointestinal disorder [Unknown]
  - Skin disorder [Unknown]
  - Pollakiuria [Unknown]
  - Pollakiuria [Unknown]
  - Hypoaesthesia [Unknown]
  - Chromaturia [Unknown]
  - Ataxia [Unknown]
  - Memory impairment [Unknown]
  - Photosensitivity reaction [Unknown]
  - Constipation [Not Recovered/Not Resolved]
  - Back pain [Not Recovered/Not Resolved]
  - Tachycardia [Unknown]
  - Anxiety [Unknown]
  - Arthralgia [Unknown]
  - Abdominal pain [Unknown]
  - Leukopenia [Unknown]
  - Dizziness [Unknown]
  - Dizziness [Unknown]
  - Palpitations [Unknown]
  - Leukopenia [Unknown]
  - Balance disorder [Unknown]
  - Heart rate increased [Unknown]
  - Leukopenia [Unknown]
  - Eye injury [Unknown]
  - Photopsia [Unknown]
  - Eye infection [Unknown]
  - Constipation [Unknown]
  - Abdominal pain [Not Recovered/Not Resolved]
  - Tremor [Unknown]
  - Bone pain [Unknown]
  - Osteoporosis [Not Recovered/Not Resolved]
  - Abdominal pain upper [Unknown]
  - Memory impairment [Unknown]
  - Drug dose omission [Unknown]
  - Asthenia [Unknown]
  - Chills [Unknown]
  - Nausea [Unknown]
  - Nausea [Unknown]
  - Diarrhoea [Not Recovered/Not Resolved]
  - Fatigue [Unknown]
  - Pyrexia [Not Recovered/Not Resolved]
  - Dyspnoea [Unknown]
  - Fatigue [Not Recovered/Not Resolved]
  - Cough [Not Recovered/Not Resolved]
  - Fatigue [Unknown]
  - Pyrexia [Unknown]
  - Fatigue [Unknown]
  - White blood cell count decreased [Unknown]
  - Pyrexia [Unknown]
  - White blood cell count decreased [Unknown]
  - White blood cell count abnormal [Unknown]
  - Haemoglobin abnormal [Unknown]
  - Eye infection [Unknown]
  - Red blood cell count abnormal [Unknown]
  - Mean cell volume increased [Unknown]
  - Retinal tear [Unknown]
  - Hyperventilation [Unknown]
  - Malaise [Unknown]
  - Pyrexia [Unknown]
  - Hepatic enzyme increased [Unknown]
  - Retinal haemorrhage [Unknown]
  - Retching [Unknown]
  - Drug dose omission [Unknown]
